FAERS Safety Report 8340718-1 (Version None)
Quarter: 2012Q2

REPORT INFORMATION
  Report Type: 
  Country: None (occurrence: None)
  Receive Date: 20120507
  Receipt Date: 20120426
  Transmission Date: 20120825
  Serious: Yes (Hospitalization)
  Sender: FDA-Public Use
  Company Number: US-BIOGENIDEC-2012BI014912

PATIENT
  Age: 40 Year
  Sex: Female

DRUGS (5)
  1. NUEDEXTA [Concomitant]
     Indication: DEPRESSION
  2. MIRAPEX [Concomitant]
  3. VALIUM [Concomitant]
     Indication: SLEEP DISORDER
  4. ELAVIL [Concomitant]
     Indication: SLEEP DISORDER
  5. TYSABRI [Suspect]
     Indication: MULTIPLE SCLEROSIS
     Route: 042
     Dates: start: 20091221

REACTIONS (4)
  - PNEUMONIA [None]
  - PULMONARY OEDEMA [None]
  - NASOPHARYNGITIS [None]
  - PERICARDIAL EFFUSION [None]
